FAERS Safety Report 9988567 (Version 1)
Quarter: 2014Q1

REPORT INFORMATION
  Report Type: Spontaneous
  Country: FR (occurrence: FR)
  Receive Date: 20140310
  Receipt Date: 20140310
  Transmission Date: 20141002
  Serious: Yes (Other)
  Sender: FDA-Public Use
  Company Number: FR-ROCHE-1357453

PATIENT
  Age: 61 Year
  Sex: Male

DRUGS (5)
  1. ZELBORAF [Suspect]
     Indication: METASTATIC MALIGNANT MELANOMA
     Dosage: 960MG
     Route: 048
     Dates: start: 20110620, end: 20120627
  2. ZELBORAF [Suspect]
     Route: 048
     Dates: start: 20120801, end: 20130206
  3. ZELBORAF [Suspect]
     Dosage: 240 MG
     Route: 048
     Dates: start: 20130207, end: 201304
  4. ZELBORAF [Suspect]
     Dosage: 240 MG
     Route: 048
     Dates: start: 201304, end: 201308
  5. KARDEGIC [Concomitant]
     Route: 065

REACTIONS (7)
  - Renal failure [Recovered/Resolved]
  - Palmoplantar keratoderma [Unknown]
  - Photosensitivity reaction [Not Recovered/Not Resolved]
  - Eyelids pruritus [Unknown]
  - Asthenia [Recovering/Resolving]
  - Diarrhoea [Recovering/Resolving]
  - Skin reaction [Unknown]
